FAERS Safety Report 9053731 (Version 1)
Quarter: 2013Q1

REPORT INFORMATION
  Report Type: Spontaneous
  Country: US (occurrence: None)
  Receive Date: 20130117
  Receipt Date: 20130117
  Transmission Date: 20140127
  Serious: Yes (Death)
  Sender: FDA-Public Use
  Company Number: 2013POI058000075

PATIENT
  Age: 67 Year
  Sex: Female

DRUGS (5)
  1. ETODOLAC [Suspect]
     Route: 048
  2. VENLAFAXINE [Suspect]
     Route: 048
  3. SALICYLATE [Suspect]
     Route: 048
     Dates: end: 2011
  4. ACETAMINOPHEN (PARACETAMOL) [Suspect]
     Route: 048
     Dates: end: 2011
  5. ETHANOL [Suspect]
     Route: 048
     Dates: end: 2011

REACTIONS (1)
  - Completed suicide [None]
